FAERS Safety Report 11228741 (Version 1)
Quarter: 2015Q2

REPORT INFORMATION
  Report Type: Spontaneous
  Country: US (occurrence: US)
  Receive Date: 20150630
  Receipt Date: 20150630
  Transmission Date: 20150821
  Serious: Yes (Other)
  Sender: FDA-Public Use
  Company Number: US-JNJFOC-20150617743

PATIENT
  Sex: Female

DRUGS (2)
  1. AVELOX [Suspect]
     Active Substance: MOXIFLOXACIN HYDROCHLORIDE
     Indication: NASOPHARYNGITIS
     Route: 048
     Dates: start: 20060919, end: 20060928
  2. LEVAQUIN [Suspect]
     Active Substance: LEVOFLOXACIN
     Indication: RASH
     Route: 048
     Dates: start: 20061004

REACTIONS (3)
  - Median nerve injury [Not Recovered/Not Resolved]
  - Ulnar nerve injury [Not Recovered/Not Resolved]
  - Neuropathy peripheral [Not Recovered/Not Resolved]

NARRATIVE: CASE EVENT DATE: 201408
